FAERS Safety Report 5235839-6 (Version None)
Quarter: 2007Q1

REPORT INFORMATION
  Report Type: 
  Country: None (occurrence: None)
  Receive Date: 20070212
  Receipt Date: 20070202
  Transmission Date: 20070707
  Serious: Yes (Hospitalization)
  Sender: FDA-Public Use
  Company Number: 2006UW26026

PATIENT
  Age: 6724 Day
  Sex: Female
  Weight: 45.4 kg

DRUGS (12)
  1. SEROQUEL [Suspect]
     Indication: DEPRESSION
     Route: 048
     Dates: end: 20061119
  2. SEROQUEL [Suspect]
     Indication: INSOMNIA
     Route: 048
     Dates: end: 20061119
  3. SEROQUEL [Suspect]
     Indication: ANXIETY
     Route: 048
     Dates: end: 20061119
  4. SEROQUEL [Suspect]
     Route: 048
     Dates: end: 20061119
  5. SEROQUEL [Suspect]
     Route: 048
     Dates: end: 20061119
  6. SEROQUEL [Suspect]
     Route: 048
     Dates: end: 20061119
  7. DORYX [Concomitant]
     Indication: ACNE
  8. FLUOXETINE [Concomitant]
     Indication: DEPRESSION
     Route: 048
     Dates: end: 20061119
  9. BUSPAR [Concomitant]
     Indication: ANXIETY
     Dates: end: 20061119
  10. LUNESTA [Concomitant]
     Indication: INSOMNIA
     Route: 048
     Dates: end: 20061119
  11. COLACE [Concomitant]
     Indication: CONSTIPATION
     Route: 048
     Dates: end: 20061119
  12. DUAC [Concomitant]
     Indication: ACNE
     Route: 061

REACTIONS (5)
  - DELIRIUM [None]
  - DEPRESSED LEVEL OF CONSCIOUSNESS [None]
  - ERYTHEMA MULTIFORME [None]
  - MENTAL STATUS CHANGES [None]
  - OVERDOSE [None]
